FAERS Safety Report 22180471 (Version 1)
Quarter: 2023Q2

REPORT INFORMATION
  Report Type: Spontaneous
  Country: CA (occurrence: CA)
  Receive Date: 20230406
  Receipt Date: 20230406
  Transmission Date: 20230721
  Serious: Yes (Other)
  Sender: FDA-Public Use
  Company Number: CA-BAXTER-2023BAX017613

PATIENT
  Age: 29 Year
  Sex: Female

DRUGS (3)
  1. BUPIVACAINE [Suspect]
     Active Substance: BUPIVACAINE
     Dosage: (BUPIVACAINE HYDROCHLORIDE IN DEXTROSE INJECTION USP SINGLE DOSE) (DOSAGE FORM: SOLUTION INTRASPINAL
     Route: 024
  2. MORPHINE SULFATE [Concomitant]
     Active Substance: MORPHINE SULFATE
     Dosage: AT AN UNSPECIFIED DOSE AND FREQUENCY (DOSAGE FORM: LIQUID EPIDURAL)
     Route: 065
  3. FENTANYL [Concomitant]
     Active Substance: FENTANYL
     Dosage: AT AN UNSPECIFIED DOSE AND FREQUENCY (DOSAGE FORM: NOT SPECIFIED)
     Route: 065

REACTIONS (1)
  - Drug ineffective [Unknown]
